FAERS Safety Report 9290266 (Version 1)
Quarter: 2013Q2

REPORT INFORMATION
  Report Type: Spontaneous
  Country: US (occurrence: None)
  Receive Date: 20130514
  Receipt Date: 20130514
  Transmission Date: 20140414
  Serious: Yes (Life-Threatening, Disabling, Other)
  Sender: FDA-Public Use
  Company Number: None

PATIENT
  Age: 59 Year
  Sex: Male
  Weight: 79.38 kg

DRUGS (1)
  1. AZITHROMYCIN [Suspect]
     Indication: INFLUENZA
     Dosage: 2 ON FIRST DAY/ THEN 1 DAILY 5 DAYS DOSE PO
     Route: 048
     Dates: start: 20130509, end: 20130511

REACTIONS (7)
  - Headache [None]
  - Diarrhoea [None]
  - Nausea [None]
  - Dyspnoea [None]
  - Heart rate increased [None]
  - Dizziness [None]
  - Abdominal pain upper [None]
